FAERS Safety Report 13556808 (Version 1)
Quarter: 2017Q2

REPORT INFORMATION
  Report Type: Spontaneous
  Country: US (occurrence: US)
  Receive Date: 20170517
  Receipt Date: 20170517
  Transmission Date: 20170830
  Serious: Yes (Hospitalization)
  Sender: FDA-Public Use
  Company Number: None

PATIENT
  Age: 79 Year
  Sex: Male
  Weight: 95.71 kg

DRUGS (1)
  1. CIPROFLOXACIN. [Suspect]
     Active Substance: CIPROFLOXACIN
     Indication: INFECTION
     Route: 048
     Dates: start: 20170420, end: 20170427

REACTIONS (7)
  - Ventricular extrasystoles [None]
  - Hypokalaemia [None]
  - Dizziness postural [None]
  - Torsade de pointes [None]
  - Decreased appetite [None]
  - Ventricular tachycardia [None]
  - Oedema peripheral [None]

NARRATIVE: CASE EVENT DATE: 20170427
